FAERS Safety Report 8826253 (Version 1)
Quarter: 2012Q4

REPORT INFORMATION
  Report Type: 
  Country: BR (occurrence: BR)
  Receive Date: 20121005
  Receipt Date: 20121005
  Transmission Date: 20130627
  Serious: Yes (Other)
  Sender: FDA-Public Use
  Company Number: BR-PFIZER INC-2012245190

PATIENT
  Age: 61 Year
  Sex: Male

DRUGS (2)
  1. CITALOR [Suspect]
     Indication: BLOOD CHOLESTEROL INCREASED
     Dosage: 10 mg, 1x/day
     Route: 048
     Dates: start: 20071002, end: 201104
  2. CITALOR [Suspect]
     Dosage: 20 mg strength
     Route: 048
     Dates: start: 201204

REACTIONS (1)
  - Cerebrovascular accident [Unknown]
